FAERS Safety Report 16376099 (Version 1)
Quarter: 2019Q2

REPORT INFORMATION
  Report Type: Spontaneous
  Country: DE (occurrence: DE)
  Receive Date: 20190531
  Receipt Date: 20190531
  Transmission Date: 20190711
  Serious: Yes (Hospitalization)
  Sender: FDA-Public Use
  Company Number: DE-AMGEN-DEUSP2019027961

PATIENT
  Age: 39 Year
  Sex: Female
  Weight: 80 kg

DRUGS (6)
  1. XGEVA [Suspect]
     Active Substance: DENOSUMAB
     Indication: METASTASES TO BONE
     Dosage: 120 MILLIGRAM, Q4WK
     Route: 065
     Dates: start: 2017, end: 20181218
  2. LETROZOLE. [Concomitant]
     Active Substance: LETROZOLE
     Indication: HORMONE-SECRETING OVARIAN TUMOUR
     Dosage: 2.5 MILLIGRAM, QD
     Dates: start: 201507
  3. CALCIUM [Concomitant]
     Active Substance: CALCIUM
     Indication: MUSCLE SPASMS
     Dosage: UNK
  4. L-THYROXINE CAMPUS [Concomitant]
     Indication: HYPOTHYROIDISM
     Dosage: 125 MICROGRAM, QD
  5. VITAMIN D3 [Concomitant]
     Active Substance: CHOLECALCIFEROL
     Indication: MUSCLE SPASMS
     Dosage: 1000 UNK, QD
  6. MAGNESIUM [Concomitant]
     Active Substance: MAGNESIUM
     Indication: MUSCLE SPASMS
     Dosage: UNK UNK, QD

REACTIONS (1)
  - Vertigo [Unknown]
